FAERS Safety Report 5507739-5 (Version None)
Quarter: 2007Q4

REPORT INFORMATION
  Report Type: 
  Country: None (occurrence: None)
  Receive Date: 20071106
  Receipt Date: 20071031
  Transmission Date: 20080405
  Serious: Yes (Other)
  Sender: FDA-Public Use
  Company Number: GB-ASTRAZENECA-2007GB00794

PATIENT
  Age: 16324 Day
  Sex: Male
  Weight: 82.7 kg

DRUGS (2)
  1. XYLOCAINE 1% WITH ADRENALINE [Suspect]
     Indication: ANALGESIA
     Dosage: 1:200,000; 5 ML EACH EYE
     Route: 050
     Dates: start: 20070411, end: 20070411
  2. XYLOCAINE 1% WITH ADRENALINE [Suspect]
     Indication: SURGERY
     Dosage: 1:200,000; 5 ML EACH EYE
     Route: 050
     Dates: start: 20070411, end: 20070411

REACTIONS (2)
  - HAEMORRHAGE [None]
  - PERIORBITAL HAEMATOMA [None]
